FAERS Safety Report 4896443-2 (Version None)
Quarter: 2006Q1

REPORT INFORMATION
  Report Type: 
  Country: None (occurrence: None)
  Receive Date: 20060131
  Receipt Date: 20050606
  Transmission Date: 20060701
  Serious: Yes (Other)
  Sender: FDA-Public Use
  Company Number: US-BRISTOL-MYERS SQUIBB COMPANY-12995015

PATIENT
  Age: 68 Year
  Sex: Female
  Weight: 55 kg

DRUGS (9)
  1. ESTRACE [Suspect]
     Indication: MENOPAUSE
     Dosage: ONE TABLET DAY 1-25 QMONTH.
     Dates: start: 19910812, end: 20010101
  2. PREMARIN [Suspect]
     Indication: MENOPAUSE
     Dates: start: 19880101, end: 20000101
  3. PROVERA [Suspect]
     Indication: MENOPAUSE
     Dosage: ONE TABLET START DAY 16 THROUGH DAY 25 QMONTH
     Dates: start: 19910812, end: 20010101
  4. ACTIVELLA [Suspect]
     Indication: MENOPAUSE
     Dates: start: 20000101, end: 20040101
  5. XANAX [Concomitant]
     Indication: ANXIETY
  6. VIOXX [Concomitant]
  7. CELEBREX [Concomitant]
  8. M.V.I. [Concomitant]
  9. PYRIDIUM [Concomitant]

REACTIONS (2)
  - BREAST CANCER [None]
  - DEPRESSION [None]
